FAERS Safety Report 16364021 (Version 1)
Quarter: 2019Q2

REPORT INFORMATION
  Report Type: Spontaneous
  Country: US (occurrence: US)
  Receive Date: 20190528
  Receipt Date: 20190528
  Transmission Date: 20190711
  Serious: No
  Sender: FDA-Public Use
  Company Number: US-TOPROL ACQUISITION LLC-2019-TOP-000053

PATIENT
  Sex: Female
  Weight: 63.49 kg

DRUGS (2)
  1. TOPROL XL [Suspect]
     Active Substance: METOPROLOL SUCCINATE
     Indication: HYPERTENSION
     Dosage: 25 MG, QD
     Route: 048
  2. METOPROLOL SUCCINATE. [Suspect]
     Active Substance: METOPROLOL SUCCINATE
     Indication: PRODUCT USED FOR UNKNOWN INDICATION
     Dosage: UNK
     Route: 065

REACTIONS (11)
  - Increased appetite [Unknown]
  - Drug ineffective [Unknown]
  - Heart rate decreased [Unknown]
  - Hyperhidrosis [Unknown]
  - Alopecia [Unknown]
  - Blood pressure increased [Unknown]
  - Abdominal pain [Recovered/Resolved]
  - Weight increased [Unknown]
  - Blood glucose abnormal [Unknown]
  - Product substitution issue [Recovered/Resolved]
  - Asthenia [Unknown]
